FAERS Safety Report 15080381 (Version 1)
Quarter: 2018Q2

REPORT INFORMATION
  Report Type: Spontaneous
  Country: US (occurrence: US)
  Receive Date: 20180628
  Receipt Date: 20180628
  Transmission Date: 20180711
  Serious: No
  Sender: FDA-Public Use
  Company Number: US-TEVA-2018-US-891469

PATIENT

DRUGS (1)
  1. LETROZOLE TEVA [Suspect]
     Active Substance: LETROZOLE
     Route: 065
     Dates: start: 2018

REACTIONS (1)
  - Adverse event [Unknown]
